FAERS Safety Report 6412147-9 (Version None)
Quarter: 2009Q4

REPORT INFORMATION
  Report Type: 
  Country: None (occurrence: None)
  Receive Date: 20091023
  Receipt Date: 20091014
  Transmission Date: 20100525
  Serious: Yes (Congenital Anomaly)
  Sender: FDA-Public Use
  Company Number: A0680610A

PATIENT
  Sex: Female

DRUGS (3)
  1. PAXIL [Suspect]
     Indication: DEPRESSION
     Dosage: 20MG PER DAY
     Dates: start: 19960101, end: 19961001
  2. SYNTHROID [Concomitant]
     Dates: start: 19960101, end: 20010101
  3. VITAMIN TAB [Concomitant]

REACTIONS (7)
  - ATRIAL SEPTAL DEFECT [None]
  - CARDIAC MURMUR [None]
  - CONGENITAL ANOMALY [None]
  - DRUG EXPOSURE DURING PREGNANCY [None]
  - MULTIPLE CONGENITAL ABNORMALITIES [None]
  - PULMONARY VALVE STENOSIS [None]
  - SUPRAVENTRICULAR TACHYCARDIA [None]
